FAERS Safety Report 4862421-2 (Version None)
Quarter: 2005Q4

REPORT INFORMATION
  Report Type: 
  Country: None (occurrence: None)
  Receive Date: 20051120
  Receipt Date: 20050907
  Transmission Date: 20060501
  Serious: No
  Sender: FDA-Public Use
  Company Number: WAES 0509USA00767

PATIENT
  Age: 78 Year
  Sex: Female

DRUGS (4)
  1. ZETIA [Suspect]
     Indication: BLOOD CHOLESTEROL INCREASED
     Dosage: 10 MG DAILY PO
     Route: 048
     Dates: start: 20020101
  2. LIPITOR [Concomitant]
  3. MANEXIN [Concomitant]
  4. NOVO-METOPROL [Concomitant]

REACTIONS (2)
  - DIZZINESS [None]
  - DRUG ADMINISTRATION ERROR [None]
